FAERS Safety Report 4878296-1 (Version None)
Quarter: 2006Q1

REPORT INFORMATION
  Report Type: 
  Country: None (occurrence: None)
  Receive Date: 20060111
  Receipt Date: 20051024
  Transmission Date: 20060701
  Serious: Yes (Death, Hospitalization, Other)
  Sender: FDA-Public Use
  Company Number: US-MERCK-0510USA08789

PATIENT
  Age: 80 Year
  Sex: Female
  Weight: 57 kg

DRUGS (40)
  1. VIOXX [Suspect]
     Indication: ARTHRITIS
     Route: 048
     Dates: start: 20001201, end: 20030120
  2. VIOXX [Suspect]
     Indication: OSTEOARTHRITIS
     Route: 048
     Dates: start: 20001201, end: 20030120
  3. ZOCOR [Concomitant]
     Indication: BLOOD CHOLESTEROL INCREASED
     Route: 048
     Dates: start: 20000406, end: 20030120
  4. ZOCOR [Concomitant]
     Indication: HIGH DENSITY LIPOPROTEIN INCREASED
     Route: 048
     Dates: start: 20000406, end: 20030120
  5. PLAVIX [Concomitant]
     Indication: CARDIAC FAILURE CONGESTIVE
     Route: 065
     Dates: start: 20020519, end: 20030120
  6. COZAAR [Concomitant]
     Indication: HYPERTENSION
     Route: 048
     Dates: start: 20020520, end: 20030120
  7. FUROSEMIDE [Concomitant]
     Indication: HYPERTENSION
     Route: 065
     Dates: start: 19981219, end: 20030120
  8. REMINYL [Concomitant]
     Indication: DEMENTIA
     Route: 065
     Dates: start: 20010615, end: 20030120
  9. ZOLOFT [Concomitant]
     Indication: DEPRESSION
     Route: 065
     Dates: start: 19950101, end: 20020509
  10. ZOLOFT [Concomitant]
     Route: 065
     Dates: start: 20020806, end: 20030120
  11. COREG [Concomitant]
     Indication: HYPERTENSION
     Route: 065
     Dates: start: 20020917, end: 20030120
  12. COREG [Concomitant]
     Indication: CARDIAC DISORDER
     Route: 065
     Dates: start: 20020917, end: 20030120
  13. CLONIDINE [Concomitant]
     Indication: HYPERTENSION
     Route: 065
     Dates: start: 20020917, end: 20030120
  14. ZESTRIL [Concomitant]
     Indication: HYPERTENSION
     Route: 065
     Dates: start: 20020528, end: 20020901
  15. ZESTRIL [Concomitant]
     Route: 065
     Dates: start: 20020528, end: 20020901
  16. ZESTRIL [Concomitant]
     Indication: CARDIAC DISORDER
     Route: 065
     Dates: start: 20020528, end: 20020901
  17. ZESTRIL [Concomitant]
     Route: 065
     Dates: start: 20020528, end: 20020901
  18. AVAPRO [Concomitant]
     Indication: HYPERTENSION
     Route: 065
     Dates: start: 20001221, end: 20020520
  19. AVAPRO [Concomitant]
     Route: 065
     Dates: start: 20001221, end: 20020520
  20. NORVASC [Concomitant]
     Indication: CARDIAC DISORDER
     Route: 065
     Dates: start: 20001221, end: 20010201
  21. NORVASC [Concomitant]
     Route: 065
     Dates: start: 20001221, end: 20010201
  22. NORVASC [Concomitant]
     Indication: HYPERTENSION
     Route: 065
     Dates: start: 20001221, end: 20010201
  23. NORVASC [Concomitant]
     Route: 065
     Dates: start: 20001221, end: 20010201
  24. NITRO-DUR [Concomitant]
     Indication: CHEST PAIN
     Route: 065
     Dates: start: 20001221, end: 20011127
  25. NITRO-DUR [Concomitant]
     Indication: ANGINA PECTORIS
     Route: 065
     Dates: start: 20001221, end: 20011127
  26. ISOSORBIDE MONONITRATE [Concomitant]
     Indication: CHEST PAIN
     Route: 065
     Dates: start: 20020523
  27. ISOSORBIDE MONONITRATE [Concomitant]
     Indication: ANGINA PECTORIS
     Route: 065
     Dates: start: 20020523
  28. ECOTRIN [Concomitant]
     Indication: CEREBROVASCULAR ACCIDENT PROPHYLAXIS
     Route: 065
     Dates: start: 19980101, end: 20030101
  29. ECOTRIN [Concomitant]
     Indication: ANTICOAGULANT THERAPY
     Route: 065
     Dates: start: 19980101, end: 20030101
  30. CELEBREX [Concomitant]
     Indication: PAIN
     Route: 065
     Dates: start: 19990414, end: 20011201
  31. CELEBREX [Concomitant]
     Indication: ARTHRITIS
     Route: 065
     Dates: start: 19990414, end: 20011201
  32. K-DUR 10 [Concomitant]
     Indication: BLOOD POTASSIUM DECREASED
     Route: 065
     Dates: start: 20001221, end: 20011121
  33. KLOR-CON [Concomitant]
     Indication: BLOOD POTASSIUM DECREASED
     Route: 065
     Dates: start: 20011121, end: 20020509
  34. KLONOPIN [Concomitant]
     Indication: SLEEP DISORDER
     Route: 065
     Dates: start: 19981209, end: 20020101
  35. PRINIVIL [Concomitant]
     Indication: HYPERTENSION
     Route: 048
     Dates: start: 20000121, end: 20020528
  36. PRINIVIL [Concomitant]
     Indication: CARDIAC DISORDER
     Route: 048
     Dates: start: 20000121, end: 20020528
  37. NITROLINGUAL [Concomitant]
     Indication: CHEST PAIN
     Route: 065
     Dates: start: 20011127, end: 20030120
  38. NITROLINGUAL [Concomitant]
     Indication: ANGINA PECTORIS
     Route: 065
     Dates: start: 20011127, end: 20030120
  39. NITROSTAT [Concomitant]
     Indication: CHEST PAIN
     Route: 065
     Dates: end: 20030120
  40. NITROSTAT [Concomitant]
     Indication: ANGINA PECTORIS
     Route: 065
     Dates: end: 20030120

REACTIONS (8)
  - CARDIAC FAILURE [None]
  - CARDIOVASCULAR DISORDER [None]
  - CEREBROVASCULAR ACCIDENT [None]
  - CHRONIC RESPIRATORY FAILURE [None]
  - HYPERTENSION [None]
  - MYOCARDIAL INFARCTION [None]
  - RENAL FAILURE CHRONIC [None]
  - SUBARACHNOID HAEMORRHAGE [None]
